FAERS Safety Report 9758155 (Version 1)
Quarter: 2013Q4

REPORT INFORMATION
  Report Type: Spontaneous
  Country: US (occurrence: None)
  Receive Date: 20131213
  Receipt Date: 20131213
  Transmission Date: 20140711
  Serious: Yes (Other)
  Sender: FDA-Public Use
  Company Number: None

PATIENT
  Age: 62 Year
  Sex: Male
  Weight: 83.92 kg

DRUGS (2)
  1. COMBIGAN [Suspect]
     Indication: GLAUCOMA
     Dosage: 1 DROP  TWICE DAILY  INTO THE EYE
     Dates: start: 20131212
  2. SIMBRINZA [Suspect]
     Indication: GLAUCOMA
     Dosage: 1 DROP  THREE TIMES DAILY  INTO THE EYE
     Dates: start: 20131125, end: 20131129

REACTIONS (3)
  - Conjunctivitis [None]
  - Extraocular muscle paresis [None]
  - Foreign body sensation in eyes [None]
